FAERS Safety Report 5403856-9 (Version None)
Quarter: 2007Q3

REPORT INFORMATION
  Report Type: 
  Country: None (occurrence: None)
  Receive Date: 20070706
  Receipt Date: 20070322
  Transmission Date: 20080115
  Serious: Yes (Other)
  Sender: FDA-Public Use
  Company Number: 489103

PATIENT
  Age: 64 Year
  Sex: Female

DRUGS (1)
  1. CELLCEPT [Suspect]
     Indication: RENAL TRANSPLANT
     Dosage: 500 MG 2PER DAY ORAL
     Route: 048

REACTIONS (1)
  - NEOPLASM MALIGNANT [None]
